FAERS Safety Report 17574613 (Version 1)
Quarter: 2020Q1

REPORT INFORMATION
  Report Type: Spontaneous
  Country: CN (occurrence: CN)
  Receive Date: 20200324
  Receipt Date: 20200324
  Transmission Date: 20200409
  Serious: Yes (Other)
  Sender: FDA-Public Use
  Company Number: CN-ROCHE-2570885

PATIENT
  Age: 31 Year
  Sex: Male

DRUGS (12)
  1. METHOTREXATE. [Suspect]
     Active Substance: METHOTREXATE
     Indication: ACUTE LYMPHOCYTIC LEUKAEMIA
     Route: 065
  2. L-ASPARAGINASE [Concomitant]
     Active Substance: ASPARAGINASE
     Dosage: 10000U/M2 DAYS 15, 17, 19, 21, 23, 25, 27, 29, 31 AND 33.
     Route: 065
  3. CYCLOPHOSPHAMIDE. [Concomitant]
     Active Substance: CYCLOPHOSPHAMIDE
     Dosage: 1.8 G/M2?FROM DAYS -5 TO -4
     Route: 042
  4. CYCLOSPORIN A [Suspect]
     Active Substance: CYCLOSPORINE
     Indication: ACUTE LYMPHOCYTIC LEUKAEMIA
     Route: 065
  5. CYCLOPHOSPHAMIDE. [Concomitant]
     Active Substance: CYCLOPHOSPHAMIDE
     Dosage: 1 G/ M2
     Route: 065
  6. MYCOPHENOLATE MOFETIL. [Suspect]
     Active Substance: MYCOPHENOLATE MOFETIL
     Indication: ACUTE LYMPHOCYTIC LEUKAEMIA
     Route: 065
  7. ATG [ANTITHYMOCYTE IMMUNOGLOBULIN] [Concomitant]
     Active Substance: LAPINE T-LYMPHOCYTE IMMUNE GLOBULIN
     Dosage: OR 4 DAYS FROM DAYS -5 TO -2.
     Route: 065
  8. ARA-C [Concomitant]
     Active Substance: CYTARABINE
     Dosage: 4 G/M2.?FROM DAY DAYS -10 TO -9.
     Route: 042
  9. FLUDARABINE [Concomitant]
     Active Substance: FLUDARABINE PHOSPHATE
     Dosage: DAYS1-3
     Route: 065
  10. CYCLOPHOSPHAMIDE. [Concomitant]
     Active Substance: CYCLOPHOSPHAMIDE
     Route: 065
  11. BUSULFAN. [Concomitant]
     Active Substance: BUSULFAN
     Dosage: FROM DAYS -8 TO -6;
     Route: 042
  12. DARATUMUMAB [Concomitant]
     Active Substance: DARATUMUMAB
     Dosage: TOTAL DOSE 800 MG
     Route: 065
     Dates: start: 20190807

REACTIONS (3)
  - Cystitis haemorrhagic [Recovered/Resolved]
  - Cytomegalovirus viraemia [Recovered/Resolved]
  - Pneumonia [Recovered/Resolved]
